FAERS Safety Report 24399931 (Version 6)
Quarter: 2025Q1

REPORT INFORMATION
  Report Type: Report from Study
  Country: RU (occurrence: RU)
  Receive Date: 20241005
  Receipt Date: 20250214
  Transmission Date: 20250409
  Serious: Yes (Hospitalization, Other)
  Sender: NOVARTIS
  Company Number: RU-002147023-NVSC2024RU167755

PATIENT
  Age: 0 Year
  Sex: Male
  Weight: 5.226 kg

DRUGS (4)
  1. ZOLGENSMA [Suspect]
     Active Substance: ONASEMNOGENE ABEPARVOVEC-XIOI
     Indication: Spinal muscular atrophy
     Route: 041
     Dates: start: 20240801, end: 20240801
  2. PREDNISOLONE [Concomitant]
     Active Substance: PREDNISOLONE
     Indication: Product used for unknown indication
     Dosage: 6.25 MG, QD (1 TIME PER DAY)
     Route: 065
     Dates: start: 20240801
  3. ESOMEPRAZOLE [Concomitant]
     Active Substance: ESOMEPRAZOLE
     Indication: Product used for unknown indication
     Dosage: 5 MG, QD (1 TIME PER DAY)
     Route: 065
     Dates: start: 20240801
  4. CHOLECALCIFEROL [Concomitant]
     Active Substance: CHOLECALCIFEROL
     Indication: Product used for unknown indication
     Dosage: 1000 IU, QD (1 TIME PER DAY)
     Route: 065
     Dates: start: 20240816

REACTIONS (8)
  - Pyrexia [Recovered/Resolved]
  - Pyrexia [Unknown]
  - Troponin I increased [Not Recovered/Not Resolved]
  - Bronchitis [Recovered/Resolved]
  - Alanine aminotransferase decreased [Unknown]
  - Activated partial thromboplastin time prolonged [Unknown]
  - Prothrombin time prolonged [Unknown]
  - Blood uric acid decreased [Unknown]

NARRATIVE: CASE EVENT DATE: 20240802
